FAERS Safety Report 4960075-8 (Version None)
Quarter: 2006Q1

REPORT INFORMATION
  Report Type: 
  Country: None (occurrence: None)
  Receive Date: 20060331
  Receipt Date: 20051130
  Transmission Date: 20060701
  Serious: Yes (Hospitalization)
  Sender: FDA-Public Use
  Company Number: US-MERCK-0512USA00032

PATIENT
  Age: 53 Year
  Sex: Male
  Weight: 107 kg

DRUGS (1)
  1. VIOXX [Suspect]
     Indication: ARTHRITIS
     Route: 048
     Dates: start: 20010124, end: 20040124

REACTIONS (4)
  - DERMATITIS CONTACT [None]
  - HERPES ZOSTER [None]
  - MYOCARDIAL INFARCTION [None]
  - SHOULDER OPERATION [None]
